FAERS Safety Report 6529752-1 (Version None)
Quarter: 2010Q1

REPORT INFORMATION
  Report Type: 
  Country: None (occurrence: None)
  Receive Date: 20100107
  Receipt Date: 20100104
  Transmission Date: 20100710
  Serious: Yes (Hospitalization)
  Sender: FDA-Public Use
  Company Number: US-BRISTOL-MYERS SQUIBB COMPANY-13509823

PATIENT
  Age: 70 Year
  Sex: Male
  Weight: 78 kg

DRUGS (22)
  1. CARBOPLATIN [Suspect]
     Indication: NEOPLASM
     Dosage: 689 MG 1 IN 22 D INTRAVENOUS 02MAY2006
     Route: 042
     Dates: start: 20060523, end: 20060523
  2. TAXOL [Suspect]
     Indication: NEOPLASM
     Dosage: STARTED IN 02-MAY-2008; CYCLE 3 DAY 1- 13JUN2006
     Route: 042
     Dates: start: 20060523, end: 20060613
  3. AXITINIB [Suspect]
     Indication: NEOPLASM
     Dosage: RECEIVED 3MG2/DY 28APR06-3MAY06; 5MG 2/D 4MAY06-19MAY06; 4MG 2/DY 25MAY06-10JUL06
     Route: 048
     Dates: start: 20060525, end: 20060710
  4. ALPRAZOLAM [Concomitant]
     Indication: ANXIETY
     Route: 048
     Dates: start: 20060530
  5. ATIVAN [Concomitant]
     Indication: ANXIETY
     Route: 048
     Dates: start: 20060301, end: 20060530
  6. ASPIRIN [Concomitant]
     Route: 048
     Dates: start: 20060214, end: 20060531
  7. LUPRON [Concomitant]
     Route: 030
     Dates: start: 20040513
  8. NILANDRON [Concomitant]
     Route: 048
     Dates: start: 20040513
  9. TOPROL-XL [Concomitant]
     Route: 048
  10. FOSAMAX [Concomitant]
     Route: 048
     Dates: start: 20040513
  11. TRICOR [Concomitant]
     Route: 048
     Dates: start: 20040514
  12. LOVASTATIN [Concomitant]
     Route: 048
     Dates: start: 20040504
  13. VITAMIN C [Concomitant]
     Route: 048
     Dates: start: 20040514, end: 20060531
  14. NORVASC [Concomitant]
     Route: 048
     Dates: start: 20060420
  15. ATARAX [Concomitant]
     Route: 048
     Dates: start: 20060523, end: 20060523
  16. DEXAMETHASONE [Concomitant]
     Route: 042
     Dates: start: 20060523, end: 20060523
  17. AMANTADINE HCL [Concomitant]
     Route: 042
     Dates: start: 20060523, end: 20060523
  18. PALONOSETRON [Concomitant]
     Route: 042
     Dates: start: 20060523, end: 20060523
  19. HYDROCORTISONE ACETATE [Concomitant]
     Route: 054
     Dates: start: 20060518, end: 20060531
  20. POTASSIUM CHLORIDE [Concomitant]
     Route: 042
     Dates: start: 20060523, end: 20060523
  21. LOPERAMIDE HCL [Concomitant]
     Route: 048
     Dates: start: 20060503
  22. LUNESTA [Concomitant]
     Route: 048
     Dates: start: 20060301, end: 20060530

REACTIONS (4)
  - ANXIETY [None]
  - DYSPNOEA [None]
  - FATIGUE [None]
  - ORTHOSTATIC HYPOTENSION [None]
